FAERS Safety Report 15328211 (Version 1)
Quarter: 2018Q3

REPORT INFORMATION
  Report Type: Report from Study
  Country: CN (occurrence: CN)
  Receive Date: 20180829
  Receipt Date: 20180829
  Transmission Date: 20181010
  Serious: Yes (Other)
  Sender: FDA-Public Use
  Company Number: CN-ROCHE-2156733

PATIENT
  Sex: Female

DRUGS (13)
  1. OXALIPLATIN. [Suspect]
     Active Substance: OXALIPLATIN
     Indication: OVARIAN CANCER RECURRENT
     Route: 065
  2. EPIRUBICIN [Suspect]
     Active Substance: EPIRUBICIN
     Indication: OVARIAN CANCER RECURRENT
     Route: 065
  3. MITOMYCIN. [Suspect]
     Active Substance: MITOMYCIN
     Indication: OVARIAN CANCER RECURRENT
     Route: 065
  4. DOXORUBICIN HYDROCHLORIDE. [Suspect]
     Active Substance: DOXORUBICIN HYDROCHLORIDE
     Indication: OVARIAN CANCER RECURRENT
     Dosage: LIPOSOME INJECTION
     Route: 065
  5. IFOSFAMIDE. [Suspect]
     Active Substance: IFOSFAMIDE
     Indication: OVARIAN CANCER RECURRENT
     Route: 065
  6. BEVACIZUMAB. [Suspect]
     Active Substance: BEVACIZUMAB
     Indication: OVARIAN CANCER RECURRENT
     Route: 041
  7. DOCETAXEL. [Suspect]
     Active Substance: DOCETAXEL
     Indication: OVARIAN CANCER RECURRENT
     Route: 065
  8. CARBOPLATIN. [Suspect]
     Active Substance: CARBOPLATIN
     Indication: OVARIAN CANCER RECURRENT
     Route: 065
  9. ETOPOSIDE. [Suspect]
     Active Substance: ETOPOSIDE
     Indication: OVARIAN CANCER RECURRENT
     Route: 065
  10. GEMCITABINE HYDROCHLORIDE. [Suspect]
     Active Substance: GEMCITABINE HYDROCHLORIDE
     Indication: OVARIAN CANCER RECURRENT
     Route: 065
  11. IRINOTECAN [Suspect]
     Active Substance: IRINOTECAN
     Indication: OVARIAN CANCER RECURRENT
     Route: 065
  12. DEXAMETHASONE. [Concomitant]
     Active Substance: DEXAMETHASONE
     Indication: PREMEDICATION
     Route: 042
  13. PACLITAXEL. [Suspect]
     Active Substance: PACLITAXEL
     Indication: OVARIAN CANCER RECURRENT
     Route: 065

REACTIONS (13)
  - Off label use [Unknown]
  - White blood cell count decreased [Unknown]
  - Diarrhoea [Unknown]
  - Transaminases increased [Unknown]
  - Arrhythmia [Unknown]
  - Abdominal pain [Unknown]
  - Vomiting [Unknown]
  - Platelet count decreased [Unknown]
  - Neutrophil count decreased [Unknown]
  - Intentional product use issue [Unknown]
  - Hypertension [Unknown]
  - Haemorrhage [Unknown]
  - Nausea [Unknown]
